FAERS Safety Report 16834139 (Version 4)
Quarter: 2020Q1

REPORT INFORMATION
  Report Type: Report from Study
  Country: US (occurrence: US)
  Receive Date: 20190920
  Receipt Date: 20200109
  Transmission Date: 20200409
  Serious: No
  Sender: FDA-Public Use
  Company Number: PHEH2019US038853

PATIENT
  Age: 52 Year
  Sex: Female

DRUGS (1)
  1. COSENTYX [Suspect]
     Active Substance: SECUKINUMAB
     Indication: PSORIASIS
     Dosage: 150 MG, QMO
     Route: 058
     Dates: start: 20190721

REACTIONS (9)
  - Urinary tract infection [Unknown]
  - Pruritus [Unknown]
  - Cystitis [Unknown]
  - Skin plaque [Unknown]
  - Dry skin [Unknown]
  - Pain [Not Recovered/Not Resolved]
  - Joint swelling [Unknown]
  - Skin laceration [Not Recovered/Not Resolved]
  - Concomitant disease aggravated [Unknown]

NARRATIVE: CASE EVENT DATE: 201909
